FAERS Safety Report 11272039 (Version 1)
Quarter: 2015Q2

REPORT INFORMATION
  Report Type: Spontaneous
  Country: US (occurrence: None)
  Receive Date: 20150625
  Receipt Date: 20150625
  Transmission Date: 20150821
  Serious: No
  Sender: FDA-Public Use
  Company Number: A-NJ2014-107452

PATIENT
  Age: 57 Year
  Sex: Female

DRUGS (3)
  1. REMODULIN [Suspect]
     Active Substance: TREPROSTINIL
     Indication: PRODUCT USED FOR UNKNOWN INDICATION
  2. OPSUMIT [Suspect]
     Active Substance: MACITENTAN
     Indication: PULMONARY HYPERTENSION
     Route: 048
     Dates: start: 20140226
  3. REVATIO (SILDENAFIL CITRATE) [Concomitant]

REACTIONS (9)
  - Catheter site swelling [None]
  - Infusion site erythema [None]
  - Device issue [None]
  - Asthenia [None]
  - Infusion site pain [None]
  - Cellulitis [None]
  - Hot flush [None]
  - Catheter site infection [None]
  - Dyspnoea [None]

NARRATIVE: CASE EVENT DATE: 20150106
